FAERS Safety Report 6005880-4 (Version None)
Quarter: 2008Q4

REPORT INFORMATION
  Report Type: 
  Country: None (occurrence: None)
  Receive Date: 20081217
  Receipt Date: 20081204
  Transmission Date: 20090506
  Serious: Yes (Death, Other)
  Sender: FDA-Public Use
  Company Number: DE-BAYER-200832461GPV

PATIENT
  Age: 55 Year
  Sex: Male

DRUGS (5)
  1. FLUDARABINE PHOSPHATE [Suspect]
     Indication: NON-HODGKIN'S LYMPHOMA
     Route: 065
     Dates: start: 20031201, end: 20040401
  2. RITUXIMAB [Suspect]
     Indication: NON-HODGKIN'S LYMPHOMA
     Route: 065
     Dates: start: 20031201, end: 20040401
  3. CYCLOPHOSPHAMIDE [Suspect]
     Indication: NON-HODGKIN'S LYMPHOMA
     Route: 065
     Dates: start: 20031201, end: 20040401
  4. PHENPROCOUMON [Concomitant]
     Indication: THROMBOSIS
     Route: 065
     Dates: start: 20040301, end: 20040601
  5. PREDNISOLONE [Concomitant]
     Indication: AUTOIMMUNE HEPATITIS
     Route: 065
     Dates: start: 20040101, end: 20040101

REACTIONS (4)
  - ACUTE HEPATIC FAILURE [None]
  - HEPATITIS B [None]
  - MULTI-ORGAN FAILURE [None]
  - SEPTIC SHOCK [None]
